FAERS Safety Report 5734505-8 (Version None)
Quarter: 2008Q2

REPORT INFORMATION
  Report Type: 
  Country: None (occurrence: None)
  Receive Date: 20080512
  Receipt Date: 20080502
  Transmission Date: 20081010
  Serious: Yes (Hospitalization)
  Sender: FDA-Public Use
  Company Number: IE-BAYER-200810770BNE

PATIENT
  Age: 27 Year
  Sex: Female

DRUGS (8)
  1. CANESTEN 2% THRUSH CREAM [Suspect]
     Indication: CANDIDIASIS
     Route: 061
     Dates: start: 20080310
  2. DIFENE [Concomitant]
     Indication: DRUG USE FOR UNKNOWN INDICATION
  3. VELOSEF [Concomitant]
     Indication: DRUG USE FOR UNKNOWN INDICATION
  4. ACETAMINOPHEN W/ CODEINE [Concomitant]
     Indication: DRUG USE FOR UNKNOWN INDICATION
  5. MARVIOL [Concomitant]
     Indication: DRUG USE FOR UNKNOWN INDICATION
  6. MEFENAMIC ACID [Concomitant]
     Indication: DRUG USE FOR UNKNOWN INDICATION
  7. ACETAMINOPHEN W/ CODEINE [Concomitant]
     Indication: DRUG USE FOR UNKNOWN INDICATION
  8. ESCITALOPRAM [Concomitant]
     Indication: DRUG USE FOR UNKNOWN INDICATION

REACTIONS (1)
  - ANAPHYLACTIC REACTION [None]
